FAERS Safety Report 8447785-5 (Version None)
Quarter: 2012Q2

REPORT INFORMATION
  Report Type: 
  Country: None (occurrence: None)
  Receive Date: 20120619
  Receipt Date: 20120612
  Transmission Date: 20120825
  Serious: No
  Sender: FDA-Public Use
  Company Number: US-TEVA-342837USA

PATIENT
  Sex: Female
  Weight: 48.578 kg

DRUGS (1)
  1. PROAIR HFA [Suspect]
     Dosage: 2 PUFFS BID
     Dates: start: 20120609

REACTIONS (2)
  - DIZZINESS [None]
  - COUGH [None]
